FAERS Safety Report 6160751-8 (Version None)
Quarter: 2009Q2

REPORT INFORMATION
  Report Type: 
  Country: None (occurrence: None)
  Receive Date: 20090416
  Receipt Date: 20090407
  Transmission Date: 20091009
  Serious: Yes (Other)
  Sender: FDA-Public Use
  Company Number: 242197

PATIENT
  Age: 77 Year
  Sex: Female

DRUGS (3)
  1. PACLITAXEL [Suspect]
     Indication: OVARIAN EPITHELIAL CANCER
     Dates: start: 20061213
  2. DOCETAXEL [Suspect]
     Indication: OVARIAN EPITHELIAL CANCER
     Dosage: INTRAVENOUS DRIP
     Route: 041
     Dates: start: 20070104
  3. CARBOPLATIN [Concomitant]

REACTIONS (4)
  - ASPHYXIA [None]
  - BACK PAIN [None]
  - CROSS SENSITIVITY REACTION [None]
  - HYPERSENSITIVITY [None]
